FAERS Safety Report 16333240 (Version 1)
Quarter: 2019Q2

REPORT INFORMATION
  Report Type: Spontaneous
  Country: GB (occurrence: GB)
  Receive Date: 20190520
  Receipt Date: 20190520
  Transmission Date: 20190711
  Serious: Yes (Hospitalization)
  Sender: FDA-Public Use
  Company Number: GB-ALLERGAN-1920615US

PATIENT
  Weight: 2.11 kg

DRUGS (2)
  1. RIFAMPICIN [Suspect]
     Active Substance: RIFAMPIN
     Indication: MATERNAL EXPOSURE DURING PREGNANCY
     Dosage: 300 MG
     Route: 064
  2. URSODEOXYCHOLIC ACID UNK [Suspect]
     Active Substance: URSODIOL
     Indication: MATERNAL EXPOSURE DURING PREGNANCY
     Dosage: 1500-3500 MG
     Route: 064

REACTIONS (2)
  - Premature baby [Unknown]
  - Meconium in amniotic fluid [Unknown]
